FAERS Safety Report 8407504-5 (Version None)
Quarter: 2012Q2

REPORT INFORMATION
  Report Type: 
  Country: None (occurrence: None)
  Receive Date: 20120604
  Receipt Date: 20120531
  Transmission Date: 20120825
  Serious: Yes (Other)
  Sender: FDA-Public Use
  Company Number: GB-PFIZER INC-2012130984

PATIENT
  Age: 46 Year
  Sex: Female
  Weight: 69 kg

DRUGS (4)
  1. QVAR 40 [Concomitant]
     Dates: start: 20120123
  2. ADCAL [Concomitant]
     Dates: start: 20120123
  3. AMLODIPINE BESYLATE [Suspect]
     Route: 048
     Dates: start: 20120516
  4. ACETAMINOPHEN AND CODEINE PHOSPHATE [Concomitant]
     Dates: start: 20120420, end: 20120518

REACTIONS (2)
  - WRONG DRUG ADMINISTERED [None]
  - ASTHMA [None]
